FAERS Safety Report 21755560 (Version 1)
Quarter: 2022Q4

REPORT INFORMATION
  Report Type: Report from Study
  Country: US (occurrence: US)
  Receive Date: 20221220
  Receipt Date: 20221220
  Transmission Date: 20230112
  Serious: Yes (Hospitalization, Other)
  Sender: FDA-Public Use
  Company Number: US-002147023-NVSC2022US289324

PATIENT
  Sex: Female

DRUGS (2)
  1. KESIMPTA [Suspect]
     Active Substance: OFATUMUMAB
     Indication: Relapsing multiple sclerosis
     Dosage: UNK UNK, QMO (20 MG/0.4 ML)
     Route: 058
  2. QVAR [Concomitant]
     Active Substance: BECLOMETHASONE DIPROPIONATE
     Indication: Product used for unknown indication
     Dosage: UNK (REDIHALER)
     Route: 065

REACTIONS (7)
  - Transient ischaemic attack [Unknown]
  - Palpitations [Unknown]
  - Muscular weakness [Unknown]
  - Memory impairment [Unknown]
  - Fear [Unknown]
  - Respiratory disorder [Unknown]
  - Restless legs syndrome [Unknown]
